FAERS Safety Report 20884496 (Version 1)
Quarter: 2022Q2

REPORT INFORMATION
  Report Type: Spontaneous
  Country: US (occurrence: None)
  Receive Date: 20220527
  Receipt Date: 20220527
  Transmission Date: 20220721
  Serious: Yes (Hospitalization)
  Sender: FDA-Public Use
  Company Number: None

PATIENT
  Sex: Female

DRUGS (25)
  1. PULMOZYME [Suspect]
     Active Substance: DORNASE ALFA
     Indication: Acute respiratory failure
     Dosage: 2.5 /2.5 MG/ML  INHALATION? ?
     Route: 055
  2. PULMOZYME [Suspect]
     Active Substance: DORNASE ALFA
     Indication: Hypoxia
  3. PULMOZYME [Suspect]
     Active Substance: DORNASE ALFA
     Indication: Hypercapnia
  4. ALBUTEROL [Concomitant]
     Active Substance: ALBUTEROL
  5. AMOX/K CLAV TAB [Concomitant]
  6. ATROVENT [Concomitant]
     Active Substance: IPRATROPIUM BROMIDE
  7. CEFDINIR SUS [Concomitant]
  8. CIPROFLOXACIN [Concomitant]
  9. DIAZEPAM [Concomitant]
     Active Substance: DIAZEPAM
  10. EPIDIOLEX SOL [Concomitant]
  11. FLOVENT HFA [Concomitant]
     Active Substance: FLUTICASONE PROPIONATE
  12. FLUTICASONE [Concomitant]
     Active Substance: FLUTICASONE
  13. FLUTICASONE SPR [Concomitant]
  14. IPRATROPIUM SPR [Concomitant]
  15. LAMOTRIGINE [Concomitant]
  16. LEVETIRACETAM [Concomitant]
     Active Substance: LEVETIRACETAM
  17. OMEPRAZOLE [Concomitant]
     Active Substance: OMEPRAZOLE
  18. POLYETHYLENE GLYCOL [Concomitant]
     Active Substance: POLYETHYLENE GLYCOL
  19. PROAIR HFA [Concomitant]
     Active Substance: ALBUTEROL SULFATE
  20. REFRESH CELL GEL [Concomitant]
  21. SENNA SYP [Concomitant]
  22. SODIUM CHLORIDE [Concomitant]
     Active Substance: SODIUM CHLORIDE
  23. TRIMETHOPRIM TAB [Concomitant]
  24. CEPHALAXIN [Concomitant]
     Active Substance: CEPHALEXIN ANHYDROUS
  25. LOTARDINE [Concomitant]

REACTIONS (1)
  - Respiratory failure [None]
